FAERS Safety Report 8020074-9 (Version None)
Quarter: 2012Q1

REPORT INFORMATION
  Report Type: 
  Country: None (occurrence: None)
  Receive Date: 20120103
  Receipt Date: 20111226
  Transmission Date: 20120608
  Serious: Yes (Hospitalization, Other)
  Sender: FDA-Public Use
  Company Number: US-TEVA-315344USA

PATIENT
  Age: 38 Year
  Sex: Female

DRUGS (2)
  1. RANITIDINE [Suspect]
     Dosage: 150 MILLIGRAM;
  2. HYDROXYCITRIC ACID [Suspect]

REACTIONS (1)
  - RENAL FAILURE ACUTE [None]
